FAERS Safety Report 24324486 (Version 1)
Quarter: 2024Q3

REPORT INFORMATION
  Report Type: Spontaneous
  Country: TR (occurrence: TR)
  Receive Date: 20240916
  Receipt Date: 20240916
  Transmission Date: 20241016
  Serious: Yes (Other)
  Sender: MEDEXUS PHARMA
  Company Number: TR-MEDEXUS PHARMA, INC.-2024MED00390

PATIENT
  Age: 66 Year
  Sex: Male

DRUGS (1)
  1. METHOTREXATE [Suspect]
     Active Substance: METHOTREXATE
     Indication: Psoriatic arthropathy
     Dosage: USED IRREGULARLY

REACTIONS (1)
  - Bone marrow failure [Unknown]
